FAERS Safety Report 4977244-3 (Version None)
Quarter: 2006Q2

REPORT INFORMATION
  Report Type: 
  Country: None (occurrence: None)
  Receive Date: 20060419
  Receipt Date: 20050527
  Transmission Date: 20061013
  Serious: Yes (Hospitalization, Disabling)
  Sender: FDA-Public Use
  Company Number: US-MERCK-0505USA03267

PATIENT
  Sex: Female
  Weight: 82 kg

DRUGS (1)
  1. VIOXX [Suspect]
     Indication: ARTHRITIS
     Route: 048
     Dates: start: 20000101, end: 20040930

REACTIONS (8)
  - ARTERIAL DISORDER [None]
  - ASTHMA [None]
  - CARDIAC DISORDER [None]
  - CEREBRAL DISORDER [None]
  - HYPERTENSION [None]
  - LUNG DISORDER [None]
  - OVERDOSE [None]
  - RENAL DISORDER [None]
